FAERS Safety Report 8462190-3 (Version None)
Quarter: 2012Q2

REPORT INFORMATION
  Report Type: 
  Country: None (occurrence: None)
  Receive Date: 20120625
  Receipt Date: 20120618
  Transmission Date: 20120825
  Serious: Yes (Hospitalization, Other)
  Sender: FDA-Public Use
  Company Number: PHHY2012JP053375

PATIENT
  Sex: Male
  Weight: 76 kg

DRUGS (6)
  1. PROCHLORPERAZINE [Concomitant]
     Indication: METASTATIC RENAL CELL CARCINOMA
     Dosage: 15 MG, UNK
     Route: 048
     Dates: start: 20110802
  2. OXYCODONE HYDROCHLORIDE [Suspect]
     Dosage: 10 MG, UNK
     Route: 048
     Dates: start: 20110802
  3. AFINITOR [Suspect]
     Indication: METASTATIC RENAL CELL CARCINOMA
     Dosage: 10 MG, DAILY
     Route: 048
     Dates: start: 20110802, end: 20110928
  4. OXYCONTIN [Suspect]
     Indication: METASTATIC RENAL CELL CARCINOMA
     Dosage: 75 MG, UNK
     Dates: start: 20110802
  5. AFINITOR [Suspect]
     Dosage: 5 MG, DAILY
     Route: 048
     Dates: start: 20110929, end: 20111011
  6. SUNITINIB MALATE [Concomitant]
     Indication: METASTATIC RENAL CELL CARCINOMA
     Dosage: 50 MG, UNK
     Route: 048
     Dates: start: 20101109, end: 20110719

REACTIONS (3)
  - HAEMOGLOBIN DECREASED [None]
  - C-REACTIVE PROTEIN INCREASED [None]
  - ASTHENIA [None]
